FAERS Safety Report 8246451-9 (Version None)
Quarter: 2012Q1

REPORT INFORMATION
  Report Type: 
  Country: None (occurrence: None)
  Receive Date: 20120329
  Receipt Date: 20120329
  Transmission Date: 20120608
  Serious: No
  Sender: FDA-Public Use
  Company Number: None

PATIENT

DRUGS (3)
  1. IBUPROFEN [Suspect]
     Indication: HEADACHE
     Dosage: 200MG
     Dates: start: 20111201, end: 20120101
  2. IBUPROFEN [Suspect]
     Indication: TENDERNESS
     Dosage: 200MG
     Dates: start: 20111201, end: 20120101
  3. IBUPROFEN [Suspect]
     Indication: PAIN
     Dosage: 200MG
     Dates: start: 20111201, end: 20120101

REACTIONS (2)
  - HEADACHE [None]
  - BACK PAIN [None]
